FAERS Safety Report 5682958-6 (Version None)
Quarter: 2008Q1

REPORT INFORMATION
  Report Type: 
  Country: None (occurrence: None)
  Receive Date: 20080327
  Receipt Date: 20080128
  Transmission Date: 20080703
  Serious: Yes (Death)
  Sender: FDA-Public Use
  Company Number: US-TYCO HEALTHCARE/MALLINCKRODT-T200800494

PATIENT

DRUGS (5)
  1. PROPOXYPHENE HCL AND ACETAMINOPHEN [Suspect]
     Route: 048
  2. AMPHETAMINE SULFATE [Suspect]
     Route: 048
  3. BUPROPION HCL [Suspect]
     Route: 048
  4. BENZODIAZEPINE DERIVATIVES [Suspect]
     Route: 048
  5. ETHANOL [Suspect]
     Route: 048

REACTIONS (4)
  - CARDIAC ARREST [None]
  - COMPLETED SUICIDE [None]
  - MULTIPLE DRUG OVERDOSE INTENTIONAL [None]
  - UNRESPONSIVE TO STIMULI [None]
